FAERS Safety Report 7545398-0 (Version None)
Quarter: 2011Q2

REPORT INFORMATION
  Report Type: 
  Country: None (occurrence: None)
  Receive Date: 20110614
  Receipt Date: 20110601
  Transmission Date: 20111010
  Serious: Yes (Other)
  Sender: FDA-Public Use
  Company Number: US-MYLANLABS-2011S1012118

PATIENT
  Age: 50 Year
  Sex: Female

DRUGS (1)
  1. FLUOXETINE HCL [Suspect]
     Route: 048
     Dates: start: 20101201, end: 20101201

REACTIONS (7)
  - SHOCK [None]
  - SEROTONIN SYNDROME [None]
  - DYSPNOEA [None]
  - VISUAL IMPAIRMENT [None]
  - PALPITATIONS [None]
  - HYPOTENSION [None]
  - THERAPEUTIC RESPONSE UNEXPECTED [None]
